FAERS Safety Report 9413139 (Version 1)
Quarter: 2013Q3

REPORT INFORMATION
  Report Type: Report from Study
  Country: US (occurrence: US)
  Receive Date: 20130722
  Receipt Date: 20130722
  Transmission Date: 20140515
  Serious: Yes (Hospitalization, Other)
  Sender: FDA-Public Use
  Company Number: US-SANOFI-AVENTIS-2013SA072742

PATIENT
  Age: 40 Year
  Sex: Female

DRUGS (4)
  1. ASPIRIN [Suspect]
     Indication: ANTIPLATELET THERAPY
     Route: 048
  2. PLAVIX [Suspect]
     Indication: ANTIPLATELET THERAPY
     Route: 048
  3. EFFIENT [Suspect]
     Indication: ANTIPLATELET THERAPY
     Route: 048
  4. EFFIENT [Suspect]
     Indication: ANTIPLATELET THERAPY
     Route: 048

REACTIONS (6)
  - Aneurysm ruptured [Recovered/Resolved]
  - Subarachnoid haemorrhage [Recovered/Resolved]
  - Pupil fixed [Recovered/Resolved]
  - Intraventricular haemorrhage [Recovered/Resolved]
  - Hydrocephalus [Recovered/Resolved]
  - Headache [Recovered/Resolved]
